FAERS Safety Report 4709102-3 (Version None)
Quarter: 2005Q3

REPORT INFORMATION
  Report Type: 
  Country: None (occurrence: None)
  Receive Date: 20050708
  Receipt Date: 20050704
  Transmission Date: 20060218
  Serious: Yes (Hospitalization)
  Sender: FDA-Public Use
  Company Number: JP-BRACCO-BRO-008779

PATIENT
  Age: 80 Year
  Sex: Male

DRUGS (4)
  1. IOPAMIDOL [Suspect]
     Indication: CORONARY ARTERY STENOSIS
     Route: 016
     Dates: start: 20050603, end: 20050603
  2. IOPAMIDOL [Suspect]
     Indication: STENT PLACEMENT
     Route: 016
     Dates: start: 20050603, end: 20050603
  3. IOPAMIDOL [Suspect]
     Indication: ARTERIOGRAM CORONARY
     Route: 016
     Dates: start: 20050603, end: 20050603
  4. DIAZEPAM [Interacting]
     Route: 050
     Dates: start: 20050603, end: 20050603

REACTIONS (2)
  - DELIRIUM [None]
  - POST PROCEDURAL COMPLICATION [None]
